FAERS Safety Report 8263647-0 (Version None)
Quarter: 2012Q2

REPORT INFORMATION
  Report Type: 
  Country: None (occurrence: None)
  Receive Date: 20120405
  Receipt Date: 20120328
  Transmission Date: 20120825
  Serious: Yes (Death, Other)
  Sender: FDA-Public Use
  Company Number: JP-AMGEN-JPNCT2011055572

PATIENT
  Age: 68 Year
  Sex: Male
  Weight: 58 kg

DRUGS (2)
  1. PANITUMUMAB [Suspect]
     Indication: COLORECTAL CANCER
     Dosage: 6 MG/KG, Q2WK
     Route: 041
     Dates: start: 20100820
  2. CONIEL [Concomitant]
     Dosage: UNK
     Route: 048

REACTIONS (5)
  - HYPOMAGNESAEMIA [None]
  - COLORECTAL CANCER [None]
  - HYPOCALCAEMIA [None]
  - DERMATITIS ACNEIFORM [None]
  - HEPATIC FAILURE [None]
